FAERS Safety Report 6948072-4 (Version None)
Quarter: 2010Q3

REPORT INFORMATION
  Report Type: 
  Country: None (occurrence: None)
  Receive Date: 20100828
  Receipt Date: 20091014
  Transmission Date: 20110219
  Serious: No
  Sender: FDA-Public Use
  Company Number: US-ABBOTT-09P-163-0603441-00

PATIENT
  Sex: Male
  Weight: 122.58 kg

DRUGS (15)
  1. NIASPAN [Suspect]
     Indication: HYPERCHOLESTEROLAEMIA
     Dates: start: 20090601
  2. LANTUS [Concomitant]
     Indication: DIABETES MELLITUS
  3. METFORMIN [Concomitant]
     Indication: DIABETES MELLITUS
  4. METOPROLOL [Concomitant]
     Indication: CARDIAC DISORDER
  5. ACTOS [Concomitant]
     Indication: DIABETES MELLITUS
  6. GLIPIZIDE [Concomitant]
     Indication: DIABETES MELLITUS
  7. LYRICA [Concomitant]
     Indication: DIABETIC NEUROPATHY
  8. DIOVAN [Concomitant]
     Indication: RENAL DISORDER
  9. SIMVASTATIN [Concomitant]
     Indication: BLOOD CHOLESTEROL INCREASED
  10. VESICARE [Concomitant]
     Indication: BENIGN PROSTATIC HYPERPLASIA
  11. UROXATRAL [Concomitant]
     Indication: BENIGN PROSTATIC HYPERPLASIA
  12. AMLODIPINE [Concomitant]
     Indication: HYPERTENSION
  13. PLAVIX [Concomitant]
     Indication: CORONARY ARTERIAL STENT INSERTION
  14. PANTOPRAZOLE [Concomitant]
     Indication: GASTROOESOPHAGEAL REFLUX DISEASE
  15. ASPIRIN [Concomitant]
     Indication: CARDIOVASCULAR EVENT PROPHYLAXIS

REACTIONS (2)
  - FLUSHING [None]
  - PRURITUS [None]
